FAERS Safety Report 21843583 (Version 3)
Quarter: 2023Q1

REPORT INFORMATION
  Report Type: Spontaneous
  Country: US (occurrence: US)
  Receive Date: 20230110
  Receipt Date: 20230208
  Transmission Date: 20230418
  Serious: No
  Sender: FDA-Public Use
  Company Number: US-PFIZER INC-2020328985

PATIENT
  Age: 66 Year
  Sex: Female

DRUGS (2)
  1. EUCRISA [Suspect]
     Active Substance: CRISABOROLE
     Indication: Psoriasis
     Dosage: APPLY TWICE DAILY TO FEET HANDS + ELBOWS
     Route: 061
     Dates: end: 2022
  2. EUCRISA [Suspect]
     Active Substance: CRISABOROLE
     Dosage: 1 APPLICATION, 1X/DAY
     Route: 061
     Dates: start: 20190612

REACTIONS (2)
  - Off label use [Unknown]
  - Limb discomfort [Recovered/Resolved]

NARRATIVE: CASE EVENT DATE: 20221214
